FAERS Safety Report 9563948 (Version 1)
Quarter: 2013Q3

REPORT INFORMATION
  Report Type: Spontaneous
  Country: IT (occurrence: IT)
  Receive Date: 20130928
  Receipt Date: 20130928
  Transmission Date: 20140515
  Serious: Yes (Other)
  Sender: FDA-Public Use
  Company Number: IT-BAYER-2013-116354

PATIENT
  Age: 51 Year
  Sex: Female

DRUGS (5)
  1. LEPIRUDIN [Suspect]
     Indication: ANTICOAGULANT THERAPY
     Dosage: 4.8 MG/KG (0.2 MG/KG,1 IN 1 HR)
     Route: 042
  2. LEPIRUDIN [Suspect]
     Indication: ANTICOAGULANT THERAPY
     Dosage: 2.4 MG/KG (0.1 MG/KG,1 IN 1 HR)
     Route: 042
  3. LEPIRUDIN [Suspect]
     Indication: ANTICOAGULANT THERAPY
     Dosage: 9.6 MG/KG (0.4 MG/KG,1 IN 1 HR)
     Route: 042
  4. WARFARIN [Concomitant]
     Indication: ANTICOAGULANT THERAPY
  5. HEPARIN [Concomitant]
     Indication: ANTICOAGULANT THERAPY

REACTIONS (4)
  - Nervous system disorder [None]
  - Cardiovascular disorder [None]
  - Renal impairment [None]
  - Liver disorder [None]
